FAERS Safety Report 8616113-4 (Version None)
Quarter: 2012Q3

REPORT INFORMATION
  Report Type: 
  Country: None (occurrence: None)
  Receive Date: 20120823
  Receipt Date: 20120808
  Transmission Date: 20120928
  Serious: Yes (Other)
  Sender: FDA-Public Use
  Company Number: JP-ROCHE-1100318

PATIENT
  Age: 68 Year
  Sex: Female

DRUGS (6)
  1. RADICUT [Suspect]
     Indication: EMBOLIC STROKE
     Dates: start: 20120619, end: 20120628
  2. GLYCEOL [Concomitant]
     Dates: start: 20120619, end: 20120701
  3. WARFARIN POTASSIUM [Concomitant]
     Route: 048
     Dates: start: 20120702
  4. ACTIVASE [Suspect]
     Indication: EMBOLIC STROKE
     Route: 042
     Dates: start: 20120619, end: 20120619
  5. INSULIN [Concomitant]
  6. HEPARIN SODIUM [Concomitant]
     Dates: start: 20120628, end: 20120702

REACTIONS (2)
  - FIBRIN D DIMER INCREASED [None]
  - FIBRIN DEGRADATION PRODUCTS INCREASED [None]
